FAERS Safety Report 16286068 (Version 4)
Quarter: 2019Q4

REPORT INFORMATION
  Report Type: Spontaneous
  Country: US (occurrence: US)
  Receive Date: 20190508
  Receipt Date: 20191010
  Transmission Date: 20200122
  Serious: No
  Sender: FDA-Public Use
  Company Number: US-PFIZER INC-2019189887

PATIENT
  Age: 57 Year
  Sex: Male
  Weight: 116 kg

DRUGS (3)
  1. LYRICA [Suspect]
     Active Substance: PREGABALIN
     Indication: NEURALGIA
     Dosage: 300 MG, 2X/DAY (MORNING AND NIGHT)
     Dates: start: 2016
  2. LYRICA [Suspect]
     Active Substance: PREGABALIN
     Indication: PAIN IN EXTREMITY
  3. LYRICA [Suspect]
     Active Substance: PREGABALIN
     Indication: WALKING DISABILITY

REACTIONS (4)
  - Gait disturbance [Unknown]
  - Intentional product misuse [Unknown]
  - Feeling abnormal [Unknown]
  - Frustration tolerance decreased [Unknown]
